FAERS Safety Report 21501216 (Version 2)
Quarter: 2022Q4

REPORT INFORMATION
  Report Type: Spontaneous
  Country: JP (occurrence: JP)
  Receive Date: 20221025
  Receipt Date: 20221129
  Transmission Date: 20230113
  Serious: Yes (Hospitalization, Other)
  Sender: FDA-Public Use
  Company Number: JP-KERYX BIOPHARMACEUTICALS INC.-JP-AKEB-22-022569

PATIENT

DRUGS (15)
  1. FERRIC CITRATE ANHYDROUS [Suspect]
     Active Substance: FERRIC CITRATE ANHYDROUS
     Indication: Product used for unknown indication
     Dosage: 750 MILLIGRAM/DAY
     Route: 048
     Dates: end: 2021
  2. ENARODUSTAT [Suspect]
     Active Substance: ENARODUSTAT
     Indication: Nephrogenic anaemia
     Dosage: 4 MILLIGRAM/DAY
     Route: 048
     Dates: start: 202201
  3. ENARODUSTAT [Suspect]
     Active Substance: ENARODUSTAT
     Dosage: 6 MILLIGRAM/DAY
     Route: 048
  4. ENARODUSTAT [Suspect]
     Active Substance: ENARODUSTAT
     Dosage: 8 MILLIGRAM/DAY
     Route: 048
  5. ENARODUSTAT [Suspect]
     Active Substance: ENARODUSTAT
     Dosage: 8 MILLIGRAM/DAY
     Route: 048
     Dates: start: 202204
  6. EPOETIN BETA [Concomitant]
     Active Substance: ERYTHROPOIETIN
     Indication: Product used for unknown indication
     Dosage: 1500 INTERNATIONAL UNIT X2/WEEK
     Route: 065
     Dates: start: 2021, end: 2021
  7. EPOETIN BETA [Concomitant]
     Active Substance: ERYTHROPOIETIN
     Dosage: 1500 INTERNATIONAL UNIT
     Route: 065
     Dates: start: 2021, end: 2021
  8. EPOETIN BETA [Concomitant]
     Active Substance: ERYTHROPOIETIN
     Dosage: 3000 INTERNATIONAL UNIT
     Route: 065
     Dates: start: 2021, end: 2021
  9. EPOETIN BETA [Concomitant]
     Active Substance: ERYTHROPOIETIN
     Dosage: 3000 INTERNATIONAL UNIT
     Route: 065
     Dates: start: 2021, end: 2021
  10. DARBEPOETIN ALFA [Concomitant]
     Active Substance: DARBEPOETIN ALFA
     Indication: Product used for unknown indication
     Dosage: 20 MICROGRAM
     Route: 065
     Dates: start: 2021, end: 2021
  11. DARBEPOETIN ALFA [Concomitant]
     Active Substance: DARBEPOETIN ALFA
     Dosage: 40 MICROGRAM
     Route: 065
     Dates: start: 2021, end: 2021
  12. DAPRODUSTAT [Concomitant]
     Active Substance: DAPRODUSTAT
     Indication: Product used for unknown indication
     Dosage: 4 MILLIGRAM
     Route: 065
     Dates: start: 2021, end: 2021
  13. DAPRODUSTAT [Concomitant]
     Active Substance: DAPRODUSTAT
     Dosage: 6 MILLIGRAM
     Route: 065
     Dates: start: 2021, end: 2021
  14. DAPRODUSTAT [Concomitant]
     Active Substance: DAPRODUSTAT
     Dosage: 8 MILLIGRAM
     Route: 065
     Dates: start: 2021, end: 2021
  15. DAPRODUSTAT [Concomitant]
     Active Substance: DAPRODUSTAT
     Dosage: 12 MILLIGRAM
     Route: 065
     Dates: start: 2021, end: 2021

REACTIONS (2)
  - Anal fistula [Unknown]
  - Rectal cancer [Unknown]

NARRATIVE: CASE EVENT DATE: 20220101
